FAERS Safety Report 11361194 (Version 1)
Quarter: 2015Q3

REPORT INFORMATION
  Report Type: Spontaneous
  Country: CA (occurrence: CA)
  Receive Date: 20150810
  Receipt Date: 20150810
  Transmission Date: 20151125
  Serious: Yes (Hospitalization, Other)
  Sender: FDA-Public Use
  Company Number: CA-BAYER-2015-394377

PATIENT
  Age: 12 Year
  Sex: Female

DRUGS (4)
  1. ETHINYLESTRADIOL + LEVONORGESTREL [Suspect]
     Active Substance: ETHINYL ESTRADIOL\LEVONORGESTREL
     Indication: MENORRHAGIA
     Dosage: 2 DF, BID
     Route: 048
  2. ETHINYLESTRADIOL + LEVONORGESTREL [Suspect]
     Active Substance: ETHINYL ESTRADIOL\LEVONORGESTREL
     Indication: MENORRHAGIA
     Dosage: 3 DF, TID
     Route: 048
  3. ETHINYLESTRADIOL + LEVONORGESTREL [Suspect]
     Active Substance: ETHINYL ESTRADIOL\LEVONORGESTREL
     Indication: MENORRHAGIA
     Dosage: 1 DF, QD
     Route: 048
  4. ETHINYLESTRADIOL + LEVONORGESTREL [Suspect]
     Active Substance: ETHINYL ESTRADIOL\LEVONORGESTREL
     Indication: MENORRHAGIA
     Dosage: 4 DF, QID
     Route: 048

REACTIONS (4)
  - Decidual cast [None]
  - Vaginal haemorrhage [Recovering/Resolving]
  - Off label use [None]
  - Uterine mass [None]
